FAERS Safety Report 9222150 (Version 3)
Quarter: 2013Q2

REPORT INFORMATION
  Report Type: Spontaneous
  Country: US (occurrence: US)
  Receive Date: 20130410
  Receipt Date: 20130604
  Transmission Date: 20140414
  Serious: Yes (Death, Other)
  Sender: FDA-Public Use
  Company Number: US-ASTELLAS-2013US003751

PATIENT
  Age: 74 Year
  Sex: Female

DRUGS (14)
  1. PROGRAF [Suspect]
     Indication: LIVER TRANSPLANT
     Dosage: 1/2  BID
     Route: 048
  2. PROGRAF [Suspect]
     Dosage: 0.5 MG, BID
     Route: 048
     Dates: start: 2011, end: 20130123
  3. ASPIRIN [Concomitant]
     Indication: PRODUCT USED FOR UNKNOWN INDICATION
     Dosage: 81 MG, UID/QD
     Route: 065
  4. DRISDOL [Concomitant]
     Indication: VITAMIN D DEFICIENCY
     Dosage: 50000 U, WEEKLY
     Route: 065
  5. LEVOTHYROXINE SODIUM [Concomitant]
     Indication: PRODUCT USED FOR UNKNOWN INDICATION
     Dosage: 50 UG, UID/QD
     Route: 065
  6. GLIPIZIDE [Concomitant]
     Indication: PRODUCT USED FOR UNKNOWN INDICATION
     Dosage: 5 MG, AM AND NOON
     Route: 065
  7. COREG [Concomitant]
     Indication: PRODUCT USED FOR UNKNOWN INDICATION
     Dosage: 18.75 MG, 1/2 AM AND 1 HS
     Route: 065
  8. OSCAL                              /00514701/ [Concomitant]
     Indication: PRODUCT USED FOR UNKNOWN INDICATION
     Dosage: 500/200 UNK, UID/QD
     Route: 065
  9. TORSEMIDE [Concomitant]
     Indication: OEDEMA
     Dosage: 10 MG, UID/QD
     Route: 065
  10. ZOCOR [Concomitant]
     Indication: PRODUCT USED FOR UNKNOWN INDICATION
     Dosage: 40 MG, UID/QD
     Route: 065
  11. FISH OIL [Concomitant]
     Indication: PRODUCT USED FOR UNKNOWN INDICATION
     Dosage: 1000 MG, QHS
     Route: 065
  12. NYSTATIN W/TRIAMCINOLONE           /00945901/ [Concomitant]
     Indication: SKIN CANDIDA
     Dosage: UNK
     Route: 061
  13. NYSTATIN [Concomitant]
     Indication: SKIN CANDIDA
     Dosage: UNK
     Route: 061
  14. TRADJENTA [Concomitant]
     Indication: DIABETES MELLITUS
     Dosage: 5 MG, UID/QD
     Route: 065

REACTIONS (2)
  - Road traffic accident [Unknown]
  - Nocardiosis [Fatal]
